FAERS Safety Report 18923642 (Version 2)
Quarter: 2021Q2

REPORT INFORMATION
  Report Type: Spontaneous
  Country: CN (occurrence: CN)
  Receive Date: 20210222
  Receipt Date: 20210423
  Transmission Date: 20210717
  Serious: Yes (Hospitalization, Other)
  Sender: FDA-Public Use
  Company Number: CN-TAKEDA-2021TJP004371

PATIENT
  Age: 23 Year
  Sex: Female

DRUGS (1)
  1. COLCHICINE. [Suspect]
     Active Substance: COLCHICINE
     Indication: MOOD SWINGS
     Dosage: 0.5 MILLIGRAM
     Route: 048

REACTIONS (10)
  - Toxicity to various agents [Unknown]
  - Metabolic acidosis [Unknown]
  - Myelosuppression [Unknown]
  - Atelectasis [Unknown]
  - Multiple organ dysfunction syndrome [Unknown]
  - Rhabdomyolysis [Unknown]
  - Hypoxia [Unknown]
  - Intentional overdose [Unknown]
  - Toxicity to various agents [Unknown]
  - Pneumonia [Unknown]

NARRATIVE: CASE EVENT DATE: 20200901
